FAERS Safety Report 24746795 (Version 1)
Quarter: 2024Q4

REPORT INFORMATION
  Report Type: Report from Study
  Country: US (occurrence: US)
  Receive Date: 20241218
  Receipt Date: 20241218
  Transmission Date: 20250115
  Serious: Yes (Other)
  Sender: AUROBINDO
  Company Number: US-AUROBINDO-AUR-APL-2024-060369

PATIENT
  Age: 11 Year
  Sex: Female

DRUGS (5)
  1. URSODIOL [Suspect]
     Active Substance: URSODIOL
     Indication: Cholestatic pruritus
     Dosage: UNK
     Route: 065
  2. HYDROXYZINE [Suspect]
     Active Substance: HYDROXYZINE HYDROCHLORIDE
     Indication: Cholestatic pruritus
     Dosage: UNK
     Route: 065
  3. RIFAMPIN [Suspect]
     Active Substance: RIFAMPIN
     Indication: Cholestatic pruritus
     Dosage: UNK
     Route: 065
  4. NALTREXONE [Concomitant]
     Active Substance: NALTREXONE
     Indication: Cholestatic pruritus
     Dosage: UNK
     Route: 065
  5. MARALIXIBAT [Concomitant]
     Active Substance: MARALIXIBAT
     Indication: Cholestatic pruritus
     Dosage: UNK
     Route: 065

REACTIONS (1)
  - Drug ineffective [Unknown]
